FAERS Safety Report 9097955 (Version 1)
Quarter: 2013Q1

REPORT INFORMATION
  Report Type: Spontaneous
  Country: US (occurrence: US)
  Receive Date: 20130212
  Receipt Date: 20130212
  Transmission Date: 20140127
  Serious: Yes (Other)
  Sender: FDA-Public Use
  Company Number: US-PFIZER INC-2013051644

PATIENT
  Sex: Female

DRUGS (2)
  1. CHANTIX [Suspect]
     Dosage: UNK
     Dates: start: 201212, end: 20130202
  2. INSULIN [Suspect]
     Indication: BLOOD GLUCOSE ABNORMAL
     Dosage: UNK

REACTIONS (3)
  - Blood glucose increased [Unknown]
  - Protein urine [Unknown]
  - Abnormal dreams [Unknown]
